FAERS Safety Report 4519217-0 (Version None)
Quarter: 2004Q4

REPORT INFORMATION
  Report Type: 
  Country: None (occurrence: None)
  Receive Date: 20041201
  Receipt Date: 20041117
  Transmission Date: 20050328
  Serious: No
  Sender: FDA-Public Use
  Company Number: 2004AC00795

PATIENT
  Sex: Female

DRUGS (1)
  1. RHINOCORT [Suspect]
     Indication: RHINITIS ALLERGIC
     Dosage: 64 UG BID IN
     Route: 055
     Dates: start: 19990301, end: 20041117

REACTIONS (3)
  - CYANOSIS [None]
  - ERYTHEMA [None]
  - NASAL OEDEMA [None]
